FAERS Safety Report 11115093 (Version 2)
Quarter: 2015Q4

REPORT INFORMATION
  Report Type: Spontaneous
  Country: FR (occurrence: FR)
  Receive Date: 20150515
  Receipt Date: 20151223
  Transmission Date: 20160304
  Serious: Yes (Hospitalization)
  Sender: FDA-Public Use
  Company Number: FR-009507513-1505FRA004362

PATIENT
  Age: 79 Year
  Sex: Female
  Weight: 58 kg

DRUGS (8)
  1. REBETOL [Suspect]
     Active Substance: RIBAVIRIN
     Indication: HEPATITIS C
     Dosage: 200 MG, QID OR TID (TO BE CONFIRMED)
     Route: 048
     Dates: start: 20140716, end: 20141230
  2. NEORECORMON [Concomitant]
     Active Substance: ERYTHROPOIETIN
     Indication: ANAEMIA
     Dosage: DOSE: 30000 IU, QW
     Dates: start: 201407, end: 2014
  3. SOVALDI [Suspect]
     Active Substance: SOFOSBUVIR
     Indication: HEPATITIS C
     Dosage: 400 MG, QD
     Route: 048
     Dates: start: 20140716, end: 20141230
  4. COOLMETEC [Concomitant]
     Active Substance: HYDROCHLOROTHIAZIDE\OLMESARTAN MEDOXOMIL
     Indication: HYPERTENSION
     Dosage: 1 DF, QD
     Dates: start: 2009
  5. DELURSAN [Concomitant]
     Active Substance: URSODIOL
     Indication: PROPHYLAXIS
     Dosage: 500 MG, TID
     Dates: start: 200807
  6. PAROXETINE [Concomitant]
     Active Substance: PAROXETINE\PAROXETINE HYDROCHLORIDE
     Dosage: 20 MG, QD
     Dates: start: 2013
  7. AMIODARONE [Concomitant]
     Active Substance: AMIODARONE
     Indication: HYPERTENSION
     Dosage: 20 MG, QD
     Dates: start: 2013
  8. DIFFU-K [Concomitant]
     Active Substance: POTASSIUM CHLORIDE
     Indication: HYPOKALAEMIA
     Dosage: DAILY DOSE UNKNOWN
     Dates: start: 2014

REACTIONS (3)
  - Anaemia [Recovered/Resolved]
  - Presyncope [Recovered/Resolved]
  - Loss of consciousness [Recovered/Resolved]

NARRATIVE: CASE EVENT DATE: 20140807
